FAERS Safety Report 24263667 (Version 2)
Quarter: 2024Q4

REPORT INFORMATION
  Report Type: Report from Study
  Country: US (occurrence: US)
  Receive Date: 20240829
  Receipt Date: 20241014
  Transmission Date: 20250115
  Serious: Yes (Death, Hospitalization, Other)
  Sender: ASTELLAS
  Company Number: US-ASTELLAS-2024-AER-002470

PATIENT
  Age: 75 Year
  Sex: Male

DRUGS (1)
  1. XTANDI [Suspect]
     Active Substance: ENZALUTAMIDE
     Indication: Prostate cancer
     Route: 048
     Dates: start: 20240601, end: 20240818

REACTIONS (4)
  - Death [Fatal]
  - Anaemia [Not Recovered/Not Resolved]
  - Oxygen saturation decreased [Not Recovered/Not Resolved]
  - Blood pressure decreased [Not Recovered/Not Resolved]

NARRATIVE: CASE EVENT DATE: 20240818
